FAERS Safety Report 12593771 (Version 1)
Quarter: 2016Q3

REPORT INFORMATION
  Report Type: Spontaneous
  Country: US (occurrence: US)
  Receive Date: 20160726
  Receipt Date: 20160726
  Transmission Date: 20161109
  Serious: No
  Sender: FDA-Public Use
  Company Number: US-ABBVIE-16P-163-1666924-00

PATIENT
  Age: 73 Year
  Sex: Female
  Weight: 56.75 kg

DRUGS (2)
  1. SYNTHROID [Suspect]
     Active Substance: LEVOTHYROXINE SODIUM
     Indication: HYPOTHYROIDISM
     Route: 048
     Dates: start: 1985, end: 20160630
  2. SYNTHROID [Suspect]
     Active Substance: LEVOTHYROXINE SODIUM
     Route: 048
     Dates: start: 20160701

REACTIONS (6)
  - Chest discomfort [Not Recovered/Not Resolved]
  - Hot flush [Recovering/Resolving]
  - Chest pain [Not Recovered/Not Resolved]
  - Headache [Recovering/Resolving]
  - Autonomic nervous system imbalance [Recovering/Resolving]
  - Dizziness [Not Recovered/Not Resolved]

NARRATIVE: CASE EVENT DATE: 20160627
